FAERS Safety Report 22108922 (Version 1)
Quarter: 2023Q1

REPORT INFORMATION
  Report Type: Spontaneous
  Country: CN (occurrence: CN)
  Receive Date: 20230317
  Receipt Date: 20230317
  Transmission Date: 20230417
  Serious: Yes (Other)
  Sender: FDA-Public Use
  Company Number: CN-009507513-2303CHN005218

PATIENT
  Age: 77 Year
  Sex: Female
  Weight: 61 kg

DRUGS (6)
  1. SITAGLIPTIN PHOSPHATE [Suspect]
     Active Substance: SITAGLIPTIN PHOSPHATE
     Indication: Diabetes mellitus management
     Dosage: 50 MILLIGRAM, QD
     Route: 048
     Dates: start: 20210706
  2. INSULIN ASPART [Suspect]
     Active Substance: INSULIN ASPART
     Indication: Diabetes mellitus management
     Dosage: 16, 14, 14U BEFORE MEALS
     Route: 058
     Dates: start: 20210706
  3. INSULIN ASPART [Suspect]
     Active Substance: INSULIN ASPART
     Dosage: 14, 12, 12 U
     Route: 058
     Dates: start: 202107
  4. INSULIN GLARGINE [Suspect]
     Active Substance: INSULIN GLARGINE
     Indication: Diabetes mellitus management
     Dosage: 24U, AT BEDTIME
     Route: 058
     Dates: start: 20210706
  5. INSULIN GLARGINE [Suspect]
     Active Substance: INSULIN GLARGINE
     Dosage: 28U, AT BEDTIME
     Route: 058
     Dates: start: 202107
  6. ACARBOSE [Suspect]
     Active Substance: ACARBOSE
     Indication: Diabetes mellitus management
     Dosage: 50 MILLIGRAM, TID
     Route: 048
     Dates: start: 20210706

REACTIONS (1)
  - Diabetes mellitus inadequate control [Recovering/Resolving]

NARRATIVE: CASE EVENT DATE: 20210701
